FAERS Safety Report 16387106 (Version 6)
Quarter: 2019Q4

REPORT INFORMATION
  Report Type: Spontaneous
  Country: DE (occurrence: DE)
  Receive Date: 20190604
  Receipt Date: 20191108
  Transmission Date: 20200122
  Serious: Yes (Death, Other)
  Sender: FDA-Public Use
  Company Number: DE-AUROBINDO-AUR-APL-2019-030993

PATIENT
  Sex: Female
  Weight: 63 kg

DRUGS (5)
  1. LETROZOLE. [Suspect]
     Active Substance: LETROZOLE
     Indication: BREAST CANCER
     Dosage: 2.5 MILLIGRAM, ONCE A DAY
     Route: 048
     Dates: start: 20190211
  2. KISQALI [Suspect]
     Active Substance: RIBOCICLIB
     Indication: BREAST CANCER
     Dosage: 200 MILLIGRAM, ONCE A DAY, 21 DAYS INTAKE, 7 DAYS PAUSE
     Route: 048
     Dates: start: 20190211, end: 20190310
  3. KISQALI [Suspect]
     Active Substance: RIBOCICLIB
     Dosage: 400 MG, QD (21 DAYS INTAKE, 7 DAYS PAUSE)
     Route: 048
     Dates: start: 20190311, end: 20190407
  4. KISQALI [Suspect]
     Active Substance: RIBOCICLIB
     Dosage: 200 MILLIGRAM, ONCE A DAY (21 DAYS INTAKE, 7 DAYS PAUSE)
     Route: 048
     Dates: start: 20190311, end: 20190407
  5. KISQALI [Suspect]
     Active Substance: RIBOCICLIB
     Dosage: 400 MILLIGRAM, ONCE A DAY (21 DAYS INTAKE, 7 DAYS PAUSE)
     Route: 048
     Dates: start: 20190211, end: 20190310

REACTIONS (14)
  - Anaemia [Recovered/Resolved]
  - Osseous cryptococcosis [Unknown]
  - Ascites [Fatal]
  - Oedema peripheral [Fatal]
  - Malignant neoplasm progression [Fatal]
  - Upper respiratory tract infection [Recovered/Resolved]
  - Product administration error [Recovered/Resolved]
  - White blood cell count decreased [Not Recovered/Not Resolved]
  - Vomiting [Unknown]
  - Diarrhoea [Unknown]
  - Metastases to liver [Unknown]
  - Weight increased [Fatal]
  - Breast cancer [Fatal]
  - Decreased appetite [Fatal]

NARRATIVE: CASE EVENT DATE: 20190211
